FAERS Safety Report 23967126 (Version 1)
Quarter: 2024Q2

REPORT INFORMATION
  Report Type: Spontaneous
  Country: US (occurrence: None)
  Receive Date: 20240611
  Receipt Date: 20240611
  Transmission Date: 20240716
  Serious: No
  Sender: FDA-Public Use
  Company Number: None

PATIENT
  Age: 63 Year
  Sex: Female
  Weight: 72 kg

DRUGS (45)
  1. NITROGLYCERIN TRANSDERMAL INFUSION SYSTEM [Suspect]
     Active Substance: NITROGLYCERIN
     Indication: Angina pectoris
     Dosage: OTHER QUANTITY : 1 PATCH(ES);?FREQUENCY : DAILY;?
     Route: 062
     Dates: start: 20231103
  2. NITROGLYCERIN TRANSDERMAL INFUSION SYSTEM [Suspect]
     Active Substance: NITROGLYCERIN
     Indication: Myocardial infarction
  3. Acebuolol [Concomitant]
  4. ALOPURINOL [Concomitant]
  5. BACLOFEN [Concomitant]
  6. CREON [Concomitant]
     Active Substance: PANCRELIPASE AMYLASE\PANCRELIPASE LIPASE\PANCRELIPASE PROTEASE
  7. Cromolyn nasal [Concomitant]
  8. Famoitdine [Concomitant]
  9. FUROSEMIDE [Concomitant]
  10. Humalog quikpen [Concomitant]
  11. JARDIANCE [Concomitant]
  12. Levalbuterol [Concomitant]
  13. Albetrol inhaler [Concomitant]
  14. MONTELUKAST [Concomitant]
     Active Substance: MONTELUKAST SODIUM
  15. Nitroglycerin patch [Concomitant]
  16. OMEPRAZOLE [Concomitant]
  17. POTASSIUM [Concomitant]
  18. PROLIA [Concomitant]
  19. REPATHA [Concomitant]
  20. ROSUVASTATIN [Concomitant]
     Active Substance: ROSUVASTATIN
  21. SERTRALINE [Concomitant]
  22. SYNTHROID [Concomitant]
  23. TOPIRAMATE [Concomitant]
     Active Substance: TOPIRAMATE
  24. Trazadpme [Concomitant]
  25. VALACYCLOVIR [Concomitant]
     Active Substance: VALACYCLOVIR HYDROCHLORIDE
  26. Aspirin [Concomitant]
  27. CALCIUM [Concomitant]
  28. ZINC [Concomitant]
     Active Substance: PYRITHIONE ZINC\ZINC\ZINC CHLORIDE
  29. Elderberry [Concomitant]
  30. B complex [Concomitant]
  31. COENZYME Q10 [Concomitant]
     Active Substance: DIETARY SUPPLEMENT\UBIDECARENONE
  32. Feosol complete [Concomitant]
  33. FISH OIL [Concomitant]
  34. FLAXSEED [Concomitant]
     Active Substance: FLAX SEED
  35. GLUTAMINE [Concomitant]
  36. MAGNESIUM [Concomitant]
  37. Maalox [Concomitant]
  38. Pinneapple enzyme [Concomitant]
  39. Pomegranate extract [Concomitant]
  40. SIMETHICONE [Concomitant]
  41. XYLIMELTS [Concomitant]
  42. Lymphadenopathy [Concomitant]
  43. compression garment [Concomitant]
  44. DEVICE [Concomitant]
     Active Substance: DEVICE
  45. NITROGLYCERIN LINGUAL [Concomitant]
     Active Substance: NITROGLYCERIN

REACTIONS (3)
  - Application site pruritus [None]
  - Application site pain [None]
  - Application site vesicles [None]

NARRATIVE: CASE EVENT DATE: 20240402
